FAERS Safety Report 6266162-9 (Version None)
Quarter: 2009Q3

REPORT INFORMATION
  Report Type: 
  Country: None (occurrence: None)
  Receive Date: 20090713
  Receipt Date: 20090707
  Transmission Date: 20100115
  Serious: Yes (Other)
  Sender: FDA-Public Use
  Company Number: US-JNJCH-2009018529

PATIENT
  Age: 70 Year
  Sex: Female

DRUGS (1)
  1. ROGAINE [Suspect]
     Indication: ALOPECIA
     Dosage: TEXT:RECOMMENDED DOSAGE TWICE A DAY
     Route: 061
     Dates: start: 20090702, end: 20090704

REACTIONS (3)
  - APPLICATION SITE BURN [None]
  - BLISTER [None]
  - WRONG DRUG ADMINISTERED [None]
